FAERS Safety Report 8789192 (Version 1)
Quarter: 2012Q4

REPORT INFORMATION
  Report Type: Spontaneous
  Country: JP (occurrence: None)
  Receive Date: 20120905
  Receipt Date: 20120905
  Transmission Date: 20130627
  Serious: Yes (Hospitalization)
  Sender: FDA-Public Use
  Company Number: TCI2012A04646

PATIENT
  Sex: Male

DRUGS (5)
  1. ROZEREM [Suspect]
     Indication: SLEEP LOSS
     Route: 048
     Dates: start: 20120803, end: 201208
  2. ROZEREM [Suspect]
     Indication: SLEEP LOSS
  3. ROZEREM [Suspect]
     Indication: SLEEP LOSS
  4. AMARYL [Suspect]
     Indication: DIABETES MELLITUS
     Route: 048
     Dates: end: 20120804
  5. VOGLIBOSE [Concomitant]

REACTIONS (1)
  - Hypoglycaemia [None]
